FAERS Safety Report 7158413-3 (Version None)
Quarter: 2010Q4

REPORT INFORMATION
  Report Type: 
  Country: None (occurrence: None)
  Receive Date: 20101214
  Receipt Date: 20100610
  Transmission Date: 20110411
  Serious: No
  Sender: FDA-Public Use
  Company Number: US-ASTRAZENECA-2010SE26980

PATIENT
  Age: 18392 Day
  Sex: Male
  Weight: 99.8 kg

DRUGS (3)
  1. CRESTOR [Suspect]
     Indication: HYPOCHOLESTEROLAEMIA
     Route: 048
     Dates: start: 20060201
  2. EXFORGE [Concomitant]
     Indication: BLOOD PRESSURE
  3. SINGULAIR [Concomitant]
     Indication: HYPERSENSITIVITY

REACTIONS (1)
  - BLOOD GLUCOSE INCREASED [None]
